FAERS Safety Report 7279048-8 (Version None)
Quarter: 2011Q1

REPORT INFORMATION
  Report Type: 
  Country: None (occurrence: None)
  Receive Date: 20110207
  Receipt Date: 20110131
  Transmission Date: 20110831
  Serious: Yes (Death, Hospitalization, Other)
  Sender: FDA-Public Use
  Company Number: PHEH2008US04339

PATIENT
  Sex: Female
  Weight: 93.7 kg

DRUGS (27)
  1. SYNTHROID [Concomitant]
  2. RADIATION THERAPY [Concomitant]
     Dosage: UNK
     Dates: start: 19990101
  3. CYCLOSPORINE [Concomitant]
  4. AUGMENTIN '125' [Concomitant]
     Dosage: UNK
  5. CHEMOTHERAPEUTICS NOS [Concomitant]
  6. CYTOXAN [Concomitant]
  7. DECADRON [Concomitant]
     Dosage: UNK
  8. PROCRIT                            /00909301/ [Concomitant]
  9. FERROUS SULFATE TAB [Concomitant]
  10. AREDIA [Suspect]
     Dosage: 90 MG, QMO
  11. GENASENSE [Concomitant]
     Dosage: UNK
  12. MELPHALAN [Concomitant]
  13. DEXAMETHASONE [Concomitant]
  14. CALCIUM [Concomitant]
  15. ZOMETA [Suspect]
  16. FOSAMAX [Suspect]
  17. BLOOD CELLS, PACKED HUMAN [Concomitant]
     Dosage: UNK
  18. VINCRISTINE [Concomitant]
  19. INTERFERON ALFA [Concomitant]
  20. ADRIAMYCIN PFS [Concomitant]
  21. TAXOL [Concomitant]
  22. THALIDOMIDE [Concomitant]
     Dosage: UNK
  23. LEVOXYL [Concomitant]
  24. VITAMIN B6 [Concomitant]
  25. PREDNISONE [Concomitant]
  26. DOXORUBICIN ^BIGMAR^ [Concomitant]
  27. COUMADIN [Concomitant]

REACTIONS (55)
  - TOOTH ABSCESS [None]
  - ANHEDONIA [None]
  - OSTEOARTHRITIS [None]
  - INFECTED SKIN ULCER [None]
  - MONOPARESIS [None]
  - ATRIOVENTRICULAR BLOCK FIRST DEGREE [None]
  - ADENOMATOUS POLYPOSIS COLI [None]
  - PNEUMONIA [None]
  - ANAEMIA [None]
  - MUSCULAR WEAKNESS [None]
  - CONJUNCTIVITIS VIRAL [None]
  - LUNG CANCER METASTATIC [None]
  - OESOPHAGEAL ULCER [None]
  - ATELECTASIS [None]
  - COMPRESSION FRACTURE [None]
  - VENOUS THROMBOSIS LIMB [None]
  - SKIN ULCER [None]
  - URETHRAL CARUNCLE [None]
  - HYPERTENSION [None]
  - ELECTROLYTE IMBALANCE [None]
  - CHOLELITHIASIS [None]
  - OVARIAN CYST [None]
  - MITRAL VALVE INCOMPETENCE [None]
  - ANAL ULCER [None]
  - THROMBOCYTOPENIA [None]
  - PULMONARY OEDEMA [None]
  - OSTEONECROSIS OF JAW [None]
  - ANXIETY [None]
  - MYELOMA RECURRENCE [None]
  - TRICUSPID VALVE INCOMPETENCE [None]
  - PANCYTOPENIA [None]
  - OESOPHAGEAL POLYP [None]
  - RECTAL HAEMORRHAGE [None]
  - NAUSEA [None]
  - DISABILITY [None]
  - OSTEOLYSIS [None]
  - OEDEMA PERIPHERAL [None]
  - HAEMORRHOIDS [None]
  - BREAST CANCER METASTATIC [None]
  - OSTEOPENIA [None]
  - PARAESTHESIA [None]
  - TRANSIENT ISCHAEMIC ATTACK [None]
  - SWELLING [None]
  - ABDOMINAL HERNIA [None]
  - CARDIOMEGALY [None]
  - HAEMATOCHEZIA [None]
  - PULMONARY CONGESTION [None]
  - INJURY [None]
  - PAIN [None]
  - NEURODEGENERATIVE DISORDER [None]
  - URINARY TRACT INFECTION [None]
  - BREATH ODOUR [None]
  - TENDERNESS [None]
  - MALLORY-WEISS SYNDROME [None]
  - PLEURAL EFFUSION [None]
